FAERS Safety Report 6396233-8 (Version None)
Quarter: 2009Q4

REPORT INFORMATION
  Report Type: 
  Country: None (occurrence: None)
  Receive Date: 20091012
  Receipt Date: 20090930
  Transmission Date: 20100525
  Serious: Yes (Hospitalization)
  Sender: FDA-Public Use
  Company Number: CA-BIOGENIDEC-2009BI009551

PATIENT
  Age: 37 Year
  Sex: Female
  Weight: 99 kg

DRUGS (3)
  1. TYSABRI [Suspect]
     Indication: MULTIPLE SCLEROSIS
     Route: 042
     Dates: start: 20080201
  2. CITALOPRAM HYDROBROMIDE [Concomitant]
     Route: 048
  3. ONDANSETRON [Concomitant]
     Route: 042

REACTIONS (2)
  - CONVULSION [None]
  - MULTIPLE SCLEROSIS [None]
